FAERS Safety Report 5885741-1 (Version None)
Quarter: 2008Q3

REPORT INFORMATION
  Report Type: 
  Country: None (occurrence: None)
  Receive Date: 20080916
  Receipt Date: 20080903
  Transmission Date: 20090109
  Serious: Yes (Hospitalization)
  Sender: FDA-Public Use
  Company Number: JP-ELI_LILLY_AND_COMPANY-JP200710004109

PATIENT
  Sex: Male

DRUGS (11)
  1. HUMALOG [Suspect]
     Indication: TYPE 2 DIABETES MELLITUS
     Dosage: 10 IU, EACH MORNING
     Route: 058
     Dates: start: 20070920, end: 20071007
  2. HUMALOG [Suspect]
     Dosage: 12 IU, DAILY (1/D)
     Route: 058
     Dates: start: 20070920, end: 20071007
  3. HUMALOG [Suspect]
     Dosage: 8 IU, EACH EVENING
     Route: 058
     Dates: start: 20070920, end: 20071007
  4. HUMULIN R [Suspect]
     Indication: TYPE 2 DIABETES MELLITUS
     Route: 058
  5. ARTIST [Concomitant]
     Indication: PROPHYLAXIS
     Dosage: 10 MG, DAILY (1/D)
     Route: 048
  6. LASIX [Concomitant]
     Indication: PROPHYLAXIS
     Dosage: 20 MG, DAILY (1/D)
     Route: 048
  7. AMLODIPINE BESYLATE [Concomitant]
     Indication: PROPHYLAXIS
     Dosage: 5 MG, DAILY (1/D)
     Route: 048
  8. ITOROL [Concomitant]
     Indication: PROPHYLAXIS
     Dosage: 40 MG, DAILY (1/D)
     Route: 048
  9. SIGMART [Concomitant]
     Indication: PROPHYLAXIS
     Dosage: 15 MG, DAILY (1/D)
     Route: 048
  10. PANALDINE [Concomitant]
     Indication: PROPHYLAXIS
     Dosage: 200 MG, DAILY (1/D)
     Route: 048
  11. SELBEX [Concomitant]
     Indication: PROPHYLAXIS
     Dosage: 150 MG, DAILY (1/D)
     Route: 048

REACTIONS (3)
  - ANTI-INSULIN ANTIBODY POSITIVE [None]
  - HYPERGLYCAEMIA [None]
  - HYPOGLYCAEMIA [None]
